FAERS Safety Report 4885047-3 (Version None)
Quarter: 2006Q1

REPORT INFORMATION
  Report Type: 
  Country: None (occurrence: None)
  Receive Date: 20060119
  Receipt Date: 20050304
  Transmission Date: 20060701
  Serious: Yes (Hospitalization)
  Sender: FDA-Public Use
  Company Number: US-MERCK-0503USA00954

PATIENT
  Age: 69 Year
  Sex: Female
  Weight: 65 kg

DRUGS (6)
  1. VIOXX [Suspect]
     Indication: ARTHRITIS
     Route: 048
     Dates: start: 20000112, end: 20030401
  2. VIOXX [Suspect]
     Indication: FIBROMYALGIA
     Route: 048
     Dates: start: 20000112, end: 20030401
  3. FOSAMAX [Concomitant]
     Route: 065
  4. PREMARIN [Concomitant]
     Route: 065
  5. ARICEPT [Concomitant]
     Route: 065
  6. ZOLOFT [Concomitant]
     Route: 065

REACTIONS (3)
  - BRAIN DAMAGE [None]
  - INJURY [None]
  - TRANSIENT ISCHAEMIC ATTACK [None]
